FAERS Safety Report 9401074 (Version 2)
Quarter: 2013Q3

REPORT INFORMATION
  Report Type: Spontaneous
  Country: US (occurrence: US)
  Receive Date: 20130715
  Receipt Date: 20130903
  Transmission Date: 20140515
  Serious: No
  Sender: FDA-Public Use
  Company Number: US-PFIZER INC-2013206404

PATIENT
  Age: 35 Year
  Sex: Female
  Weight: 61.22 kg

DRUGS (2)
  1. ADVIL PM [Suspect]
     Indication: INSOMNIA
     Dosage: UNK, AS NEEDED
     Route: 048
     Dates: start: 2013, end: 2013
  2. ADVIL PM [Suspect]
     Indication: HEADACHE

REACTIONS (3)
  - Drug ineffective [Unknown]
  - Feeling abnormal [Unknown]
  - Somnolence [Unknown]
